FAERS Safety Report 7684530-5 (Version None)
Quarter: 2011Q3

REPORT INFORMATION
  Report Type: 
  Country: None (occurrence: None)
  Receive Date: 20110816
  Receipt Date: 20110808
  Transmission Date: 20111222
  Serious: No
  Sender: FDA-Public Use
  Company Number: US-BIOGENIDEC-2011BI030019

PATIENT
  Age: 35 Year
  Sex: Male

DRUGS (3)
  1. TYSABRI [Suspect]
     Indication: MULTIPLE SCLEROSIS
     Route: 042
     Dates: start: 20110101
  2. TYSABRI [Suspect]
     Route: 042
     Dates: start: 20090601, end: 20101027
  3. TYSABRI [Suspect]
     Route: 042
     Dates: start: 20070110, end: 20081205

REACTIONS (1)
  - MULTIPLE SCLEROSIS RELAPSE [None]
